FAERS Safety Report 12561544 (Version 5)
Quarter: 2016Q4

REPORT INFORMATION
  Report Type: Spontaneous
  Country: CA (occurrence: CA)
  Receive Date: 20160715
  Receipt Date: 20161216
  Transmission Date: 20170207
  Serious: Yes (Other)
  Sender: FDA-Public Use
  Company Number: CA-GLAXOSMITHKLINE-CA2016GSK101240

PATIENT
  Sex: Male

DRUGS (4)
  1. FLOVENT [Suspect]
     Active Substance: FLUTICASONE PROPIONATE
     Indication: PRODUCT USED FOR UNKNOWN INDICATION
     Dosage: UNK
     Dates: start: 2015
  2. VENTOLIN [Suspect]
     Active Substance: ALBUTEROL SULFATE
     Indication: PRODUCT USED FOR UNKNOWN INDICATION
     Dosage: UNK
  3. ADVAIR HFA [Suspect]
     Active Substance: FLUTICASONE PROPIONATE\SALMETEROL XINAFOATE
     Indication: PRODUCT USED FOR UNKNOWN INDICATION
     Dosage: UNK
  4. NUCALA [Suspect]
     Active Substance: MEPOLIZUMAB
     Indication: ASTHMA
     Dosage: 100 MG, Z
     Dates: start: 20160830, end: 20160928

REACTIONS (19)
  - Decreased appetite [Unknown]
  - Dry mouth [Not Recovered/Not Resolved]
  - Gastric disorder [Unknown]
  - Transient ischaemic attack [Unknown]
  - Heart rate irregular [Unknown]
  - Oropharyngeal pain [Unknown]
  - Abdominal discomfort [Unknown]
  - Peripheral swelling [Unknown]
  - Micturition disorder [Unknown]
  - Malaise [Unknown]
  - Cough [Not Recovered/Not Resolved]
  - Drug dependence [Unknown]
  - Back pain [Unknown]
  - Nausea [Unknown]
  - Nasal congestion [Not Recovered/Not Resolved]
  - Weight decreased [Unknown]
  - Feeding disorder [Unknown]
  - Headache [Unknown]
  - Insomnia [Unknown]
